FAERS Safety Report 7762257-9 (Version None)
Quarter: 2011Q3

REPORT INFORMATION
  Report Type: 
  Country: None (occurrence: None)
  Receive Date: 20110920
  Receipt Date: 20110218
  Transmission Date: 20111222
  Serious: Yes (Other)
  Sender: FDA-Public Use
  Company Number: JP-ROCHE-761897

PATIENT
  Age: 4 Year
  Sex: Male
  Weight: 18 kg

DRUGS (1)
  1. TAMIFLU [Suspect]
     Indication: INFLUENZA
     Dosage: TAMIFLU DRY SYRUP 3%(OSELTAMIVIR), NOTE: DOSAGE IS UNCERTAIN.
     Route: 048

REACTIONS (1)
  - ABNORMAL BEHAVIOUR [None]
